FAERS Safety Report 4635432-X (Version None)
Quarter: 2005Q2

REPORT INFORMATION
  Report Type: 
  Country: None (occurrence: None)
  Receive Date: 20050413
  Receipt Date: 20050331
  Transmission Date: 20051028
  Serious: Yes (Disabling, Other)
  Sender: FDA-Public Use
  Company Number: 2002062577

PATIENT
  Age: 50 Year
  Sex: Male

DRUGS (8)
  1. VIAGRA [Suspect]
     Indication: ERECTILE DYSFUNCTION
     Dosage: 100 MG (AS NECESSARY), ORAL
     Route: 048
     Dates: start: 20000801
  2. TERAZOSIN HYDROCHLORIDE [Concomitant]
  3. GABAPENTIN [Concomitant]
  4. METAXALONE [Concomitant]
  5. DIRITHROMYCIN (DIRITHROMYCIN) [Concomitant]
  6. RESPAIRE-SR-120 (GUAIFENESIN, PSEUDOEPHEDRINE HYDROCHLORIDE) [Concomitant]
  7. FEXOFENADINE HYDROCHLORIDE [Concomitant]
  8. ASPIRIN [Concomitant]

REACTIONS (42)
  - BLINDNESS UNILATERAL [None]
  - BLOOD PRESSURE INCREASED [None]
  - BRONCHITIS [None]
  - BUNDLE BRANCH BLOCK RIGHT [None]
  - CAROTID ARTERY DISEASE [None]
  - CHEST PAIN [None]
  - CHILLS [None]
  - COUGH [None]
  - DIABETES MELLITUS [None]
  - DIARRHOEA [None]
  - ELECTROCARDIOGRAM ABNORMAL [None]
  - ELECTROCARDIOGRAM PR PROLONGATION [None]
  - ELECTROCARDIOGRAM QRS COMPLEX PROLONGED [None]
  - ELECTROCARDIOGRAM QT CORRECTED INTERVAL PROLONGED [None]
  - ELECTROCARDIOGRAM QT PROLONGED [None]
  - EMBOLISM [None]
  - EXCORIATION [None]
  - HEADACHE [None]
  - INTRAOCULAR PRESSURE INCREASED [None]
  - MASS [None]
  - MITRAL VALVE DISEASE [None]
  - MITRAL VALVE INCOMPETENCE [None]
  - MYOCARDIAL INFARCTION [None]
  - NASAL MUCOSAL DISORDER [None]
  - NEUROPATHIC PAIN [None]
  - NUCLEAR MAGNETIC RESONANCE IMAGING ABNORMAL [None]
  - NUCLEAR MAGNETIC RESONANCE IMAGING BRAIN ABNORMAL [None]
  - OCULAR HYPERTENSION [None]
  - OEDEMA PERIPHERAL [None]
  - OPTIC ATROPHY [None]
  - OPTIC ISCHAEMIC NEUROPATHY [None]
  - OPTIC NERVE DISORDER [None]
  - OPTIC NERVE HYPOPLASIA [None]
  - PRURITUS [None]
  - PYREXIA [None]
  - RETINAL ARTERY OCCLUSION [None]
  - SCAR [None]
  - SEBORRHOEIC KERATOSIS [None]
  - SKIN ULCER [None]
  - SLEEP APNOEA SYNDROME [None]
  - SPUTUM DISCOLOURED [None]
  - THERAPY NON-RESPONDER [None]
